FAERS Safety Report 14323860 (Version 2)
Quarter: 2019Q1

REPORT INFORMATION
  Report Type: Report from Study
  Country: NL (occurrence: NL)
  Receive Date: 20171226
  Receipt Date: 20190219
  Transmission Date: 20190417
  Serious: Yes (Hospitalization)
  Sender: FDA-Public Use
  Company Number: NL-ROCHE-2041107

PATIENT

DRUGS (5)
  1. 5-FLUOROURACIL [Suspect]
     Active Substance: FLUOROURACIL
     Indication: COLORECTAL CANCER
     Dosage: ON 20/JAN/2017, THE PATIENT RECEIVED MOST RECENT DOSE OF FLUOROURACIL PRIOR TO SERIOUS ADVERSE EVENT
     Route: 042
     Dates: start: 20161215
  2. IRINOTECAN [Suspect]
     Active Substance: IRINOTECAN
     Indication: COLORECTAL CANCER
     Dosage: ON 20/JAN/2017, THE PATIENT RECEIVED MOST RECENT DOSE OF IRINOTECAN PRIOR TO SERIOUS ADVERSE EVENT O
     Route: 042
     Dates: start: 20161215
  3. BEVACIZUMAB. [Suspect]
     Active Substance: BEVACIZUMAB
     Indication: COLORECTAL CANCER
     Dosage: ON 29/DEC/2016, THE PATIENT RECEIVED MOST RECENT DOSE OF BEVACIZUMAB PRIOR TO SERIOUS ADVERSE EVENT
     Route: 042
     Dates: start: 20161215
  4. LEUCOVORIN. [Suspect]
     Active Substance: LEUCOVORIN
     Indication: COLORECTAL CANCER
     Dosage: ON 20/JAN/2017, THE PATIENT RECEIVED MOST RECENT DOSE OF LEUCOVORIN PRIOR TO SERIOUS ADVERSE EVENT O
     Route: 042
     Dates: start: 20161215
  5. OXALIPLATIN. [Suspect]
     Active Substance: OXALIPLATIN
     Indication: COLORECTAL CANCER
     Dosage: ON 20/JAN/2017, THE PATIENT RECEIVED MOST RECENT DOSE OF OXALIPLATIN PRIOR TO SERIOUS ADVERSE EVENT
     Route: 042
     Dates: start: 20161215

REACTIONS (2)
  - Ill-defined disorder [Recovered/Resolved]
  - Fistula [Recovering/Resolving]

NARRATIVE: CASE EVENT DATE: 20170206
